FAERS Safety Report 25766745 (Version 1)
Quarter: 2025Q3

REPORT INFORMATION
  Report Type: Spontaneous
  Country: CN (occurrence: CN)
  Receive Date: 20250905
  Receipt Date: 20250905
  Transmission Date: 20251021
  Serious: Yes (Other)
  Sender: JOHNSON AND JOHNSON
  Company Number: CN-JNJFOC-20250835666

PATIENT
  Age: 73 Year
  Sex: Female
  Weight: 59 kg

DRUGS (2)
  1. SPORANOX [Suspect]
     Active Substance: ITRACONAZOLE
     Indication: Tinea manuum
     Route: 048
     Dates: start: 20250718, end: 20250724
  2. SPORANOX [Suspect]
     Active Substance: ITRACONAZOLE
     Indication: Tinea pedis

REACTIONS (2)
  - Self-medication [Unknown]
  - Oedema [Unknown]
